FAERS Safety Report 6775560-6 (Version None)
Quarter: 2010Q2

REPORT INFORMATION
  Report Type: 
  Country: None (occurrence: None)
  Receive Date: 20100617
  Receipt Date: 20100608
  Transmission Date: 20101027
  Serious: Yes (Other)
  Sender: FDA-Public Use
  Company Number: IE-PFIZER INC-2010071894

PATIENT
  Age: 64 Year
  Sex: Male

DRUGS (2)
  1. LIPITOR [Suspect]
     Indication: MYOCARDIAL ISCHAEMIA
     Dosage: 20 MG, 1X/DAY
  2. FLUCONAZOLE [Interacting]
     Indication: CANDIDIASIS
     Dosage: UNK

REACTIONS (4)
  - CANDIDIASIS [None]
  - DRUG INTERACTION [None]
  - MUSCLE SPASMS [None]
  - PAIN IN EXTREMITY [None]
